FAERS Safety Report 13550841 (Version 1)
Quarter: 2017Q2

REPORT INFORMATION
  Report Type: Spontaneous
  Country: CA (occurrence: CA)
  Receive Date: 20170516
  Receipt Date: 20170516
  Transmission Date: 20170830
  Serious: Yes (Hospitalization)
  Sender: FDA-Public Use
  Company Number: CA-CELGENEUS-CAN-20170502137

PATIENT
  Sex: Female

DRUGS (1)
  1. OTEZLA [Suspect]
     Active Substance: APREMILAST
     Indication: PRODUCT USED FOR UNKNOWN INDICATION
     Route: 048
     Dates: start: 201703

REACTIONS (7)
  - Blood magnesium decreased [Unknown]
  - Blood potassium decreased [Unknown]
  - Pancreatitis [Unknown]
  - Blood sodium decreased [Unknown]
  - Myalgia [Unknown]
  - Nausea [Unknown]
  - Decreased appetite [Unknown]
